FAERS Safety Report 12079114 (Version 1)
Quarter: 2016Q1

REPORT INFORMATION
  Report Type: Spontaneous
  Country: US (occurrence: US)
  Receive Date: 20160216
  Receipt Date: 20160216
  Transmission Date: 20160526
  Serious: No
  Sender: FDA-Public Use
  Company Number: US-009507513-1602USA001504

PATIENT
  Age: 62 Year
  Sex: Male

DRUGS (1)
  1. BELSOMRA [Suspect]
     Active Substance: SUVOREXANT
     Indication: INSOMNIA
     Dosage: 15 MG/30 MINUTES BEFORE BED
     Route: 048
     Dates: start: 20160127

REACTIONS (8)
  - Somnambulism [Recovering/Resolving]
  - Speech disorder [Recovering/Resolving]
  - Frontotemporal dementia [Unknown]
  - Dysgeusia [Recovering/Resolving]
  - Visual impairment [Recovering/Resolving]
  - Nightmare [Recovering/Resolving]
  - Sleep disorder [Recovering/Resolving]
  - Somnolence [Recovering/Resolving]

NARRATIVE: CASE EVENT DATE: 2016
